FAERS Safety Report 5959501-7 (Version None)
Quarter: 2008Q4

REPORT INFORMATION
  Report Type: 
  Country: None (occurrence: None)
  Receive Date: 20081117
  Receipt Date: 20081105
  Transmission Date: 20090506
  Serious: Yes (Other)
  Sender: FDA-Public Use
  Company Number: JPI-P-005328

PATIENT
  Age: 77 Year
  Sex: Female

DRUGS (2)
  1. LUVOX CR [Suspect]
     Indication: DRUG USE FOR UNKNOWN INDICATION
     Dosage: ORAL
     Route: 048
  2. TRAZODONE HCL [Concomitant]

REACTIONS (1)
  - DELAYED RECOVERY FROM ANAESTHESIA [None]
